FAERS Safety Report 11037710 (Version 2)
Quarter: 2015Q2

REPORT INFORMATION
  Report Type: Report from Study
  Country: AU (occurrence: AU)
  Receive Date: 20150416
  Receipt Date: 20150520
  Transmission Date: 20150821
  Serious: Yes (Other)
  Sender: FDA-Public Use
  Company Number: AU-SA-2015SA045344

PATIENT
  Age: 67 Year
  Sex: Female

DRUGS (6)
  1. HUMIRA [Concomitant]
     Active Substance: ADALIMUMAB
     Dates: end: 20150505
  2. VOLTAREN [Concomitant]
     Active Substance: DICLOFENAC SODIUM
  3. CHLORSIG [Concomitant]
     Active Substance: CHLORAMPHENICOL
     Dates: start: 201505, end: 201505
  4. CEPHALEXIN. [Concomitant]
     Active Substance: CEPHALEXIN
     Dates: start: 201505
  5. ARAVA [Suspect]
     Active Substance: LEFLUNOMIDE
     Route: 048
     Dates: start: 20030615, end: 20150512
  6. PARACETAMOL [Concomitant]
     Active Substance: ACETAMINOPHEN

REACTIONS (17)
  - Synovial cyst [Not Recovered/Not Resolved]
  - Localised infection [Unknown]
  - Finger deformity [Unknown]
  - Osteoarthritis [Unknown]
  - Rheumatoid arthritis [Not Recovered/Not Resolved]
  - Knee deformity [Not Recovered/Not Resolved]
  - Chronic sinusitis [Unknown]
  - Erythema [Recovering/Resolving]
  - Lymphangitis [Unknown]
  - Conjunctivitis [Unknown]
  - Red blood cell sedimentation rate increased [Not Recovered/Not Resolved]
  - Pain [Not Recovered/Not Resolved]
  - Swelling [Recovering/Resolving]
  - Disease progression [Not Recovered/Not Resolved]
  - Meniscus injury [Not Recovered/Not Resolved]
  - Dysstasia [Not Recovered/Not Resolved]
  - C-reactive protein increased [Not Recovered/Not Resolved]

NARRATIVE: CASE EVENT DATE: 201403
